FAERS Safety Report 9518664 (Version 2)
Quarter: 2013Q3

REPORT INFORMATION
  Report Type: Report from Study
  Country: FR (occurrence: FR)
  Receive Date: 20130912
  Receipt Date: 20130912
  Transmission Date: 20140515
  Serious: Yes (Hospitalization, Other)
  Sender: FDA-Public Use
  Company Number: PHHO2013FR008890

PATIENT
  Age: 66 Year
  Sex: Male
  Weight: 80 kg

DRUGS (8)
  1. AFINITOR [Suspect]
     Indication: NON-HODGKIN^S LYMPHOMA
     Dosage: 5 MG, EVERY OTHER DAY
     Dates: start: 20130301, end: 20130625
  2. RITUXIMAB [Suspect]
     Indication: NON-HODGKIN^S LYMPHOMA
     Dosage: UNK
     Dates: start: 20130301
  3. LERCAN [Concomitant]
  4. KREDEX [Concomitant]
  5. RAMIPRIL [Concomitant]
  6. DIFFU K [Concomitant]
     Dosage: 600 MG, (1-1-1)
  7. OXYCONTIN [Concomitant]
  8. OXYNORM [Concomitant]

REACTIONS (2)
  - Febrile neutropenia [Recovered/Resolved]
  - Mucosal inflammation [Recovered/Resolved]
